FAERS Safety Report 5486692-7 (Version None)
Quarter: 2007Q4

REPORT INFORMATION
  Report Type: 
  Country: None (occurrence: None)
  Receive Date: 20071016
  Receipt Date: 20071012
  Transmission Date: 20080405
  Serious: Yes (Hospitalization)
  Sender: FDA-Public Use
  Company Number: US-BAYER-200712284BWH

PATIENT
  Age: 44 Year
  Sex: Female
  Weight: 91 kg

DRUGS (1)
  1. AVELOX [Suspect]
     Indication: LOCALISED INFECTION
     Route: 048
     Dates: start: 20070703

REACTIONS (4)
  - DIZZINESS [None]
  - ILL-DEFINED DISORDER [None]
  - INCOHERENT [None]
  - MUSCLE TWITCHING [None]
